FAERS Safety Report 9896573 (Version 2)
Quarter: 2014Q1

REPORT INFORMATION
  Report Type: Spontaneous
  Country: US (occurrence: US)
  Receive Date: 20140213
  Receipt Date: 20140213
  Transmission Date: 20141002
  Serious: No
  Sender: FDA-Public Use
  Company Number: US-BRISTOL-MYERS SQUIBB COMPANY-19119866

PATIENT
  Age: 61 Year
  Sex: Female
  Weight: 93.42 kg

DRUGS (3)
  1. ABATACEPT SUBQ INJECTION 125MG/ML [Suspect]
     Indication: RHEUMATOID ARTHRITIS
     Dosage: LAST INJECTION WAS ON 17JUL2013. PREVIOUSLY ON ORENCIA IV INFUSIONS?EVERY WEDNESDAY
     Route: 058
     Dates: start: 20130612, end: 2013
  2. IBUPROFEN [Concomitant]
  3. GABAPENTIN [Concomitant]

REACTIONS (11)
  - Swelling face [Unknown]
  - Eye swelling [Unknown]
  - Eye discharge [Unknown]
  - Fatigue [Unknown]
  - Feeling hot [Unknown]
  - Dyspnoea [Unknown]
  - Drug ineffective [Unknown]
  - Erythema [Unknown]
  - Asthenia [Unknown]
  - Hypersensitivity [Recovering/Resolving]
  - Drug ineffective [Unknown]
